FAERS Safety Report 9095074 (Version 1)
Quarter: 2013Q1

REPORT INFORMATION
  Report Type: Spontaneous
  Country: VE (occurrence: VE)
  Receive Date: 20130220
  Receipt Date: 20130220
  Transmission Date: 20140127
  Serious: Yes (Death, Hospitalization)
  Sender: FDA-Public Use
  Company Number: PHHY2013VE016396

PATIENT
  Age: 52 Year
  Sex: Male

DRUGS (1)
  1. MYFORTIC [Suspect]
     Indication: PROPHYLAXIS AGAINST TRANSPLANT REJECTION
     Dosage: DAILY
     Route: 048
     Dates: start: 20100901, end: 20121208

REACTIONS (2)
  - Respiratory arrest [Fatal]
  - Pneumonia [Recovering/Resolving]
